FAERS Safety Report 5925198-5 (Version None)
Quarter: 2008Q4

REPORT INFORMATION
  Report Type: 
  Country: None (occurrence: None)
  Receive Date: 20081020
  Receipt Date: 20081020
  Transmission Date: 20090506
  Serious: Yes (Life-Threatening)
  Sender: FDA-Public Use
  Company Number: None

PATIENT
  Age: 71 Year
  Sex: Male
  Weight: 70.7611 kg

DRUGS (1)
  1. CLARITHROMYCIN [Suspect]
     Indication: PERTUSSIS
     Dosage: ONE ADAY PO ONLY TOOK 2 BECAUSE SIDE --
     Route: 048
     Dates: start: 20070817, end: 20070824

REACTIONS (9)
  - CONDITION AGGRAVATED [None]
  - CONVULSION [None]
  - DYSPNOEA [None]
  - HEARING IMPAIRED [None]
  - HEART RATE INCREASED [None]
  - HEART RATE IRREGULAR [None]
  - ORAL MUCOSAL DISCOLOURATION [None]
  - PRURITUS [None]
  - RASH [None]
